FAERS Safety Report 20112062 (Version 3)
Quarter: 2022Q1

REPORT INFORMATION
  Report Type: Other
  Country: CA (occurrence: None)
  Receive Date: 20211125
  Receipt Date: 20220329
  Transmission Date: 20220423
  Serious: Yes (Other)
  Sender: FDA-Public Use
  Company Number: CA-ROCHE-2306066

PATIENT
  Age: 48 Year
  Sex: Female

DRUGS (4)
  1. OCREVUS [Suspect]
     Active Substance: OCRELIZUMAB
     Indication: Relapsing-remitting multiple sclerosis
     Dosage: 300 MG AT DAY 0 AND 14, THEN 600 MG EVERY 6 MONTH
     Route: 042
     Dates: start: 20190409
  2. OCREVUS [Suspect]
     Active Substance: OCRELIZUMAB
     Dosage: LIQUID
     Route: 042
     Dates: start: 20191025
  3. OCREVUS [Suspect]
     Active Substance: OCRELIZUMAB
     Dosage: LIQUID
     Route: 042
     Dates: start: 20190409
  4. DULOXETINE [Concomitant]
     Active Substance: DULOXETINE
     Dates: start: 2018

REACTIONS (6)
  - Multiple sclerosis [Recovered/Resolved]
  - Syncope [Recovered/Resolved]
  - Mass [Recovered/Resolved]
  - Headache [Not Recovered/Not Resolved]
  - Mental disorder [Recovering/Resolving]
  - Back pain [Not Recovered/Not Resolved]

NARRATIVE: CASE EVENT DATE: 20190414
